FAERS Safety Report 7249694-6 (Version None)
Quarter: 2011Q1

REPORT INFORMATION
  Report Type: 
  Country: None (occurrence: None)
  Receive Date: 20110128
  Receipt Date: 20110120
  Transmission Date: 20110831
  Serious: Yes (Life-Threatening, Hospitalization, Other)
  Sender: FDA-Public Use
  Company Number: US-PFIZER INC-2010004957

PATIENT
  Sex: Female
  Weight: 86.168 kg

DRUGS (2)
  1. EFFEXOR XR [Suspect]
     Indication: SCHIZOAFFECTIVE DISORDER
     Dosage: 225 MG/DAY
     Route: 048
  2. GEODON [Suspect]
     Indication: SCHIZOAFFECTIVE DISORDER
     Dosage: 120MG/DAY

REACTIONS (4)
  - SUICIDE ATTEMPT [None]
  - LIVER FUNCTION TEST ABNORMAL [None]
  - SUICIDAL BEHAVIOUR [None]
  - PARANOIA [None]
